FAERS Safety Report 14509464 (Version 1)
Quarter: 2018Q1

REPORT INFORMATION
  Report Type: Spontaneous
  Country: US (occurrence: US)
  Receive Date: 20180207
  Receipt Date: 20180207
  Transmission Date: 20180509
  Serious: Yes (Hospitalization)
  Sender: FDA-Public Use
  Company Number: None

PATIENT
  Age: 70 Year
  Sex: Female

DRUGS (15)
  1. CELLCEPT [Concomitant]
     Active Substance: MYCOPHENOLATE MOFETIL\MYCOPHENOLATE MOFETIL HYDROCHLORIDE
  2. MYCOPHENOLATE [Suspect]
     Active Substance: MYCOPHENOLIC ACID
     Indication: RENAL TRANSPLANT
     Route: 048
     Dates: start: 20170614
  3. CAPTOPRIL. [Concomitant]
     Active Substance: CAPTOPRIL
  4. METOPROLOL. [Concomitant]
     Active Substance: METOPROLOL
  5. PAXIL [Concomitant]
     Active Substance: PAROXETINE HYDROCHLORIDE
  6. PRILOSEC [Concomitant]
     Active Substance: OMEPRAZOLE MAGNESIUM
  7. DEYTOL [Concomitant]
  8. LOSARTAN. [Concomitant]
     Active Substance: LOSARTAN
  9. PROGRAF [Suspect]
     Active Substance: TACROLIMUS\TACROLIMUS ANHYDROUS
     Indication: RENAL TRANSPLANT
     Route: 048
     Dates: start: 20170601
  10. LIPITOR [Concomitant]
     Active Substance: ATORVASTATIN CALCIUM
  11. PANTOPRAZOLE [Concomitant]
     Active Substance: PANTOPRAZOLE
  12. PREDNISONE. [Concomitant]
     Active Substance: PREDNISONE
  13. PROCRIT [Concomitant]
     Active Substance: ERYTHROPOIETIN
  14. TRAZODONE [Concomitant]
     Active Substance: TRAZODONE HYDROCHLORIDE
  15. ZEMPLAR [Concomitant]
     Active Substance: PARICALCITOL

REACTIONS (1)
  - Pericardial effusion [None]

NARRATIVE: CASE EVENT DATE: 20180201
